FAERS Safety Report 8067784-5 (Version None)
Quarter: 2012Q1

REPORT INFORMATION
  Report Type: 
  Country: None (occurrence: None)
  Receive Date: 20120124
  Receipt Date: 20120119
  Transmission Date: 20120608
  Serious: Yes (Hospitalization, Other)
  Sender: FDA-Public Use
  Company Number: FR-PFIZER INC-2010020447

PATIENT
  Age: 71 Year
  Sex: Male

DRUGS (10)
  1. BISOPROLOL FUMARATE [Concomitant]
     Dosage: UNK
  2. EXELON [Concomitant]
     Dosage: UNK
  3. ISOPTIN [Concomitant]
     Dosage: 40 MG, UNK
  4. PLAVIX [Concomitant]
     Dosage: 75 MG, UNK
  5. GLUCOPHAGE [Suspect]
     Dosage: 850 MG, 2X/DAY
     Route: 048
     Dates: end: 20100125
  6. RAMIPRIL [Suspect]
     Dosage: 2.5 MG, UNK
     Route: 048
     Dates: end: 20100125
  7. PREVISCAN [Concomitant]
     Dosage: UNK
  8. ATORVASTATIN CALCIUM [Suspect]
     Dosage: UNK
     Route: 048
     Dates: end: 20100125
  9. LASIX [Suspect]
     Dosage: 60 MG, UNK
     Route: 048
     Dates: end: 20100125
  10. VISIPAQUE [Suspect]
     Indication: COMPUTERISED TOMOGRAM
     Dosage: UNK
     Dates: start: 20100119

REACTIONS (7)
  - LACTIC ACIDOSIS [None]
  - HYPERKALAEMIA [None]
  - ANAEMIA MACROCYTIC [None]
  - CONFUSIONAL STATE [None]
  - DIARRHOEA [None]
  - RENAL FAILURE ACUTE [None]
  - ABDOMINAL PAIN [None]
